FAERS Safety Report 24121491 (Version 2)
Quarter: 2024Q3

REPORT INFORMATION
  Report Type: Report from Study
  Country: DE (occurrence: DE)
  Receive Date: 20240722
  Receipt Date: 20240813
  Transmission Date: 20241017
  Serious: Yes (Hospitalization)
  Sender: PFIZER
  Company Number: DE-PFIZER INC-PV202400094615

PATIENT
  Age: 57 Year
  Sex: Female

DRUGS (4)
  1. PALBOCICLIB [Suspect]
     Active Substance: PALBOCICLIB
     Indication: Breast cancer
     Dosage: 125 MG, DAILY FROM DAY 1 TO DAY 21 EVERY 28 DAY CYCLE
     Route: 048
     Dates: start: 20240113
  2. FULVESTRANT [Suspect]
     Active Substance: FULVESTRANT
     Indication: Breast cancer
     Dosage: 500 MG, DAY 1 OF 28 DAY CYCLE
     Route: 030
     Dates: start: 20231222
  3. ACTRAPHANE [Concomitant]
     Active Substance: INSULIN HUMAN
     Indication: Type 1 diabetes mellitus
     Dosage: UNK
     Route: 058
     Dates: start: 2004
  4. ACTRAPID [Concomitant]
     Active Substance: INSULIN HUMAN
     Indication: Type 1 diabetes mellitus
     Dosage: UNK
     Route: 058
     Dates: start: 20040607

REACTIONS (1)
  - Neck dissection [Recovered/Resolved]

NARRATIVE: CASE EVENT DATE: 20240717
